FAERS Safety Report 20068442 (Version 1)
Quarter: 2021Q4

REPORT INFORMATION
  Report Type: Spontaneous
  Country: US (occurrence: US)
  Receive Date: 20211115
  Receipt Date: 20211115
  Transmission Date: 20220304
  Serious: Yes (Hospitalization, Other)
  Sender: FDA-Public Use
  Company Number: US-SA-2021SA367774

PATIENT
  Age: 43 Year
  Sex: Male

DRUGS (1)
  1. RIFAMPIN [Suspect]
     Active Substance: RIFAMPIN
     Indication: Infection prophylaxis
     Dosage: 2 DF

REACTIONS (10)
  - Acute kidney injury [Unknown]
  - Type II hypersensitivity [Unknown]
  - Nausea [Unknown]
  - Vomiting [Unknown]
  - Flank pain [Unknown]
  - Chromaturia [Unknown]
  - Renal tubular necrosis [Unknown]
  - Thrombotic microangiopathy [Unknown]
  - Thrombocytopenia [Unknown]
  - Anaemia [Unknown]
